FAERS Safety Report 23253415 (Version 1)
Quarter: 2023Q4

REPORT INFORMATION
  Report Type: Spontaneous
  Country: US (occurrence: US)
  Receive Date: 20231202
  Receipt Date: 20231202
  Transmission Date: 20240109
  Serious: Yes (Other)
  Sender: FDA-Public Use
  Company Number: US-ENDO-CASE-0047634

PATIENT
  Sex: Male

DRUGS (2)
  1. PERCOCET [Suspect]
     Active Substance: ACETAMINOPHEN\OXYCODONE HYDROCHLORIDE
  2. FENTANYL CITRATE [Suspect]
     Active Substance: FENTANYL CITRATE

REACTIONS (9)
  - Gastrointestinal disorder [Unknown]
  - Renal disorder [Unknown]
  - Liver injury [Unknown]
  - Cardiac disorder [Unknown]
  - Heart rate irregular [Unknown]
  - Weight increased [Unknown]
  - Metabolic disorder [Unknown]
  - Injection site discomfort [Unknown]
  - Scar [Unknown]
